FAERS Safety Report 4725212-9 (Version None)
Quarter: 2005Q3

REPORT INFORMATION
  Report Type: 
  Country: None (occurrence: None)
  Receive Date: 20050726
  Receipt Date: 20050429
  Transmission Date: 20060218
  Serious: Yes (Other)
  Sender: FDA-Public Use
  Company Number: NLWYE634902MAY05

PATIENT
  Sex: Female
  Weight: 58 kg

DRUGS (4)
  1. ENBREL [Suspect]
     Indication: ANKYLOSING SPONDYLITIS
     Route: 058
     Dates: start: 20050405
  2. INH [Concomitant]
     Indication: TUBERCULIN TEST POSITIVE
     Dates: start: 20050201
  3. VITAMIN B COMPLEX CAP [Concomitant]
     Indication: PROPHYLAXIS
     Dates: start: 20050201
  4. PREMARIN [Concomitant]
     Indication: HYSTEROSALPINGO-OOPHORECTOMY

REACTIONS (2)
  - MEDICATION ERROR [None]
  - PALPITATIONS [None]
